FAERS Safety Report 25829927 (Version 3)
Quarter: 2025Q4

REPORT INFORMATION
  Report Type: Spontaneous
  Country: US (occurrence: US)
  Receive Date: 20250922
  Receipt Date: 20251106
  Transmission Date: 20260118
  Serious: No
  Sender: SANOFI AVENTIS
  Company Number: US-SA-2025SA280802

PATIENT
  Age: 74 Year
  Sex: Male

DRUGS (3)
  1. DUPIXENT [Suspect]
     Active Substance: DUPILUMAB
     Indication: Dermatitis atopic
     Dosage: 300 MG, QOW
     Route: 058
     Dates: start: 201810, end: 20251001
  2. OFEV [Concomitant]
     Active Substance: NINTEDANIB
     Dosage: UNK
  3. OFEV [Concomitant]
     Active Substance: NINTEDANIB
     Dates: end: 20251001

REACTIONS (4)
  - Nausea [Unknown]
  - Vomiting [Unknown]
  - Gastrointestinal disorder [Unknown]
  - Headache [Unknown]

NARRATIVE: CASE EVENT DATE: 20250801
